FAERS Safety Report 8515083-7 (Version None)
Quarter: 2012Q3

REPORT INFORMATION
  Report Type: 
  Country: None (occurrence: None)
  Receive Date: 20120717
  Receipt Date: 20120710
  Transmission Date: 20120928
  Serious: Yes (Hospitalization)
  Sender: FDA-Public Use
  Company Number: US-B.I. PHARMACEUTICALS,INC./RIDGEFIELD-2012-BP-15374BP

PATIENT
  Sex: Male

DRUGS (7)
  1. PRADAXA [Suspect]
     Dosage: 150 MG
     Route: 048
     Dates: start: 20110101
  2. FUROSEMIDE [Concomitant]
     Indication: DIURETIC THERAPY
  3. GLIPIZIDE [Concomitant]
     Indication: DIABETES MELLITUS
     Dosage: 5 MG
     Route: 048
  4. SPIRONOLACTONE [Concomitant]
  5. METOPROLOL TARTRATE [Concomitant]
     Indication: HYPERTENSION
     Dosage: 100 MG
     Route: 048
  6. PANTOPRAZOLE [Concomitant]
     Indication: ABDOMINAL DISCOMFORT
  7. LOSARTAN POTASSIUM [Concomitant]
     Dosage: 50 MG
     Route: 048

REACTIONS (5)
  - MYOCARDIAL INFARCTION [None]
  - OEDEMA PERIPHERAL [None]
  - DYSPEPSIA [None]
  - ERYTHEMA [None]
  - PULMONARY OEDEMA [None]
